FAERS Safety Report 25298549 (Version 1)
Quarter: 2025Q2

REPORT INFORMATION
  Report Type: Report from Study
  Country: IT (occurrence: IT)
  Receive Date: 20250512
  Receipt Date: 20250512
  Transmission Date: 20250716
  Serious: Yes (Hospitalization)
  Sender: SERVIER
  Company Number: None

PATIENT

DRUGS (7)
  1. PEGASPARGASE [Suspect]
     Active Substance: PEGASPARGASE
     Indication: Acute lymphocytic leukaemia recurrent
     Route: 042
     Dates: start: 20241028, end: 20241028
  2. VINCRISTINE [Suspect]
     Active Substance: VINCRISTINE
     Indication: Acute lymphocytic leukaemia recurrent
     Route: 042
     Dates: start: 20241022, end: 20241028
  3. CYTARABINE [Suspect]
     Active Substance: CYTARABINE
     Indication: Acute lymphocytic leukaemia recurrent
     Route: 042
     Dates: start: 20241025, end: 20241026
  4. METHOTREXATE SODIUM [Suspect]
     Active Substance: METHOTREXATE SODIUM
     Indication: Acute lymphocytic leukaemia recurrent
     Route: 042
     Dates: start: 20241022, end: 20241022
  5. METHOTREXATE SODIUM [Suspect]
     Active Substance: METHOTREXATE SODIUM
     Route: 037
     Dates: start: 20241023
  6. PURINETHOL [Suspect]
     Active Substance: MERCAPTOPURINE
     Indication: Acute lymphocytic leukaemia recurrent
     Route: 048
     Dates: start: 20241022, end: 20241026
  7. CYTARABINE [Suspect]
     Active Substance: CYTARABINE
     Indication: Acute lymphocytic leukaemia recurrent
     Route: 037
     Dates: start: 20241023

REACTIONS (1)
  - Pancytopenia [Recovered/Resolved]

NARRATIVE: CASE EVENT DATE: 20241104
